FAERS Safety Report 17517724 (Version 1)
Quarter: 2020Q1

REPORT INFORMATION
  Report Type: Spontaneous
  Country: US (occurrence: US)
  Receive Date: 20200309
  Receipt Date: 20200309
  Transmission Date: 20200409
  Serious: No
  Sender: FDA-Public Use
  Company Number: None

PATIENT
  Age: 88 Year
  Sex: Male
  Weight: 88.45 kg

DRUGS (12)
  1. BRUKINSA [Suspect]
     Active Substance: ZANUBRUTINIB
     Route: 048
  2. AZITHROMYCIN 250MG [Concomitant]
     Active Substance: AZITHROMYCIN ANHYDROUS
  3. EXELON TD 4.6MG/24H [Concomitant]
  4. FAMOTIDINE 20MG [Concomitant]
     Active Substance: FAMOTIDINE
  5. NASONEX [Concomitant]
     Active Substance: MOMETASONE FUROATE
  6. OMEPRAZOLE 40MG [Concomitant]
     Active Substance: OMEPRAZOLE
  7. CEFUROXIME 500MG [Concomitant]
     Active Substance: CEFUROXIME
  8. NAMZARIC [Concomitant]
     Active Substance: DONEPEZIL HYDROCHLORIDE\MEMANTINE HYDROCHLORIDE
  9. TIZANIDINE 2MG [Concomitant]
     Active Substance: TIZANIDINE
  10. ATORVASTATIN 20MG [Concomitant]
     Active Substance: ATORVASTATIN
  11. PRESERVISION AREDS [Concomitant]
     Active Substance: MINERALS\VITAMINS
  12. VITAMIN B12 100MCG [Concomitant]

REACTIONS (1)
  - Platelet count decreased [None]
